FAERS Safety Report 8021763-2 (Version None)
Quarter: 2012Q1

REPORT INFORMATION
  Report Type: 
  Country: None (occurrence: None)
  Receive Date: 20120104
  Receipt Date: 20111230
  Transmission Date: 20120608
  Serious: Yes (Other)
  Sender: FDA-Public Use
  Company Number: PHHY2011US16894

PATIENT
  Sex: Female

DRUGS (7)
  1. LIPITOR [Concomitant]
     Dosage: 10 MG, UNK
  2. LISINOPRIL [Concomitant]
     Dosage: 40 MG, UNK
  3. TASIGNA [Suspect]
     Indication: CHRONIC MYELOID LEUKAEMIA
     Dosage: 400 MG, BID
     Route: 048
     Dates: start: 20101117, end: 20111201
  4. PREMPRO [Concomitant]
     Dosage: 1.5 UKN, UNK
  5. VITAMIN B COMPLEX CAP [Concomitant]
     Dosage: 50000 IU, UNK
  6. PREMPRO [Concomitant]
     Dosage: 0.3 OT, UNK
  7. METOPROLOL TARTRATE [Concomitant]
     Dosage: 50 MG

REACTIONS (6)
  - IMPAIRED GASTRIC EMPTYING [None]
  - MUSCLE SPASMS [None]
  - HEPATOMEGALY [None]
  - ALOPECIA [None]
  - PRURITUS [None]
  - NEURALGIA [None]
